FAERS Safety Report 12902113 (Version 3)
Quarter: 2016Q4

REPORT INFORMATION
  Report Type: Spontaneous
  Country: US (occurrence: US)
  Receive Date: 20161102
  Receipt Date: 20161212
  Transmission Date: 20170207
  Serious: No
  Sender: FDA-Public Use
  Company Number: US-PFIZER INC-2015389547

PATIENT
  Age: 65 Year
  Sex: Female
  Weight: 59.86 kg

DRUGS (15)
  1. IBRANCE [Suspect]
     Active Substance: PALBOCICLIB
     Dosage: 100 MG, 1X/DAY (ONCE A DAY)
     Dates: start: 20161017
  2. ZYRTEC [Concomitant]
     Active Substance: CETIRIZINE HYDROCHLORIDE
     Indication: HYPERSENSITIVITY
     Dosage: 10 MG, DAILY
     Dates: start: 2013
  3. ASPIRIN. [Concomitant]
     Active Substance: ASPIRIN
     Indication: INTRACRANIAL ANEURYSM
     Dosage: 325 MG, 1X/DAY (AT NIGHT)
     Dates: start: 2013
  4. ZOMETA [Concomitant]
     Active Substance: ZOLEDRONIC ACID
     Indication: SUPPLEMENTATION THERAPY
     Dosage: 4 MG, UNK (EVERY 4 WEEKS IV INFUSION AT THE CLINIC)
     Route: 042
     Dates: start: 2015
  5. FENTANYL. [Concomitant]
     Active Substance: FENTANYL
     Indication: PAIN
     Dosage: 100 UG, UNK (1 PATCH CHANGE EVERY 72 HOURS)
     Route: 062
     Dates: start: 201605
  6. FEMARA [Concomitant]
     Active Substance: LETROZOLE
     Indication: OESTROGEN REPLACEMENT THERAPY
     Dosage: UNK, 1X/DAY DOSE: 2.5, TAKES ONCE A DAY
     Dates: start: 201310
  7. VITAMIN D3 [Concomitant]
     Active Substance: CHOLECALCIFEROL
     Indication: SUPPLEMENTATION THERAPY
     Dosage: 1000 IU, 2X/DAY
     Dates: start: 2013
  8. NORCO [Concomitant]
     Active Substance: ACETAMINOPHEN\HYDROCODONE BITARTRATE
     Indication: BONE PAIN
     Dosage: UNK UNK, AS NEEDED (HYDROCODONE BITARTRATE: 10MG; ACETAMINOPHEN: 325MG) (1 EVERY 4 HOURS)
     Dates: start: 2014
  9. PROAIR HFA [Concomitant]
     Active Substance: ALBUTEROL SULFATE
     Indication: PNEUMONIA
     Dosage: 90 UG, AS NEEDED (1 TO 2 PUFFS EVERY 4 HOURS)
     Route: 055
     Dates: start: 201510
  10. IBRANCE [Suspect]
     Active Substance: PALBOCICLIB
     Indication: BREAST CANCER
     Dosage: 125 MG, CYCLIC (1 A DAY FOR 21 DAYS, THEN OFF FOR 7 DAYS)
     Dates: start: 201512, end: 201604
  11. LOSARTAN. [Concomitant]
     Active Substance: LOSARTAN
     Indication: HYPERTENSION
     Dosage: 50 MG, DAILY
     Dates: start: 2013
  12. MOTRIN [Concomitant]
     Active Substance: IBUPROFEN
     Indication: PAIN
     Dosage: 200 MG, AS NEEDED (2 TABLETS EVERY 4 HOURS)
     Dates: start: 2013
  13. CALCIUM [Concomitant]
     Active Substance: CALCIUM
     Indication: SUPPLEMENTATION THERAPY
     Dosage: 600 MG, 2X/DAY
     Dates: start: 2013
  14. FEMARA [Concomitant]
     Active Substance: LETROZOLE
     Indication: BREAST CANCER
  15. SIMVASTATIN. [Concomitant]
     Active Substance: SIMVASTATIN
     Indication: BLOOD CHOLESTEROL INCREASED
     Dosage: 20 MG, 1X/DAY (AT NIGHT)
     Dates: start: 2014

REACTIONS (2)
  - Neoplasm progression [Unknown]
  - White blood cell count decreased [Recovered/Resolved]

NARRATIVE: CASE EVENT DATE: 201604
